FAERS Safety Report 5754827-4 (Version None)
Quarter: 2008Q2

REPORT INFORMATION
  Report Type: 
  Country: None (occurrence: None)
  Receive Date: 20080527
  Receipt Date: 20080515
  Transmission Date: 20081010
  Serious: Yes (Death, Other)
  Sender: FDA-Public Use
  Company Number: 19358

PATIENT
  Age: 15 Year
  Sex: Male

DRUGS (10)
  1. CYTARABINE [Suspect]
     Indication: ACUTE LYMPHOCYTIC LEUKAEMIA
  2. VINCRISTINE [Suspect]
     Indication: ACUTE LYMPHOCYTIC LEUKAEMIA
  3. METHYLPREDNISOLONE [Suspect]
     Indication: ACUTE LYMPHOCYTIC LEUKAEMIA
  4. DAUNORUBICIN HCL [Suspect]
     Indication: ACUTE LYMPHOCYTIC LEUKAEMIA
  5. ASPARAGINASE [Suspect]
     Indication: ACUTE LYMPHOCYTIC LEUKAEMIA
  6. ETOPOSIDE [Suspect]
     Indication: ACUTE LYMPHOCYTIC LEUKAEMIA
  7. TPN [Suspect]
     Indication: ORAL INTAKE REDUCED
  8. IMIPENEM [Suspect]
     Indication: ANTIBIOTIC THERAPY
  9. AMIKACIN [Suspect]
     Indication: ANTIBIOTIC THERAPY
  10. BECLOMETHASONE DIPROPIONATE [Suspect]
     Indication: LUNG HYPERINFLATION
     Dosage: 0.25 UG BID NB

REACTIONS (11)
  - BRONCHOPULMONARY ASPERGILLOSIS [None]
  - COAGULOPATHY [None]
  - FEBRILE NEUTROPENIA [None]
  - HAEMOPTYSIS [None]
  - HEPATOSPLENIC CANDIDIASIS [None]
  - LUNG CONSOLIDATION [None]
  - NEUTROPENIC COLITIS [None]
  - PLEURITIC PAIN [None]
  - PULMONARY HAEMORRHAGE [None]
  - STOMATITIS [None]
  - THROMBOCYTOPENIA [None]
